FAERS Safety Report 16392860 (Version 1)
Quarter: 2019Q2

REPORT INFORMATION
  Report Type: Spontaneous
  Country: US (occurrence: US)
  Receive Date: 20190605
  Receipt Date: 20190605
  Transmission Date: 20190711
  Serious: Yes (Hospitalization)
  Sender: FDA-Public Use
  Company Number: US-ROCHE-2260875

PATIENT
  Sex: Male

DRUGS (2)
  1. ESBRIET [Suspect]
     Active Substance: PIRFENIDONE
     Indication: IDIOPATHIC PULMONARY FIBROSIS
     Dosage: STRENGTH: 801 MG
     Route: 048
     Dates: start: 20170128
  2. ESBRIET [Suspect]
     Active Substance: PIRFENIDONE
     Dosage: STRENGTH: 801 MG
     Route: 048
     Dates: start: 20181221

REACTIONS (2)
  - Nausea [Unknown]
  - Gastric ulcer haemorrhage [Unknown]
